FAERS Safety Report 11854046 (Version 1)
Quarter: 2015Q4

REPORT INFORMATION
  Report Type: Spontaneous
  Country: US (occurrence: US)
  Receive Date: 20151219
  Receipt Date: 20151219
  Transmission Date: 20160305
  Serious: No
  Sender: FDA-Public Use
  Company Number: US-BAUSCH-BL-2015-023366

PATIENT
  Sex: Female

DRUGS (2)
  1. XENAZINE [Suspect]
     Active Substance: TETRABENAZINE
     Indication: TARDIVE DYSKINESIA
     Route: 048
     Dates: start: 20141022
  2. XENAZINE [Suspect]
     Active Substance: TETRABENAZINE
     Dosage: HALF A TABLET OF THE 12.5MG  ORALLY DAILY
     Route: 048

REACTIONS (3)
  - Off label use [Not Recovered/Not Resolved]
  - Somnolence [Not Recovered/Not Resolved]
  - Drug administration error [Not Recovered/Not Resolved]
